FAERS Safety Report 4701609-8 (Version None)
Quarter: 2005Q2

REPORT INFORMATION
  Report Type: 
  Country: None (occurrence: None)
  Receive Date: 20050627
  Receipt Date: 20050614
  Transmission Date: 20051028
  Serious: Yes (Hospitalization)
  Sender: FDA-Public Use
  Company Number: ATO-05-0227

PATIENT
  Age: 64 Year
  Sex: Female
  Weight: 55 kg

DRUGS (9)
  1. TRISENOX [Suspect]
     Indication: ACUTE PROMYELOCYTIC LEUKAEMIA
     Dosage: SEE IMAGE
     Route: 042
     Dates: start: 20050429, end: 20050429
  2. TRISENOX [Suspect]
     Indication: ACUTE PROMYELOCYTIC LEUKAEMIA
     Dosage: SEE IMAGE
     Route: 042
     Dates: start: 20050430, end: 20050501
  3. DAUNORUBICIN HCL [Suspect]
     Indication: ACUTE PROMYELOCYTIC LEUKAEMIA
     Dosage: 69 MG (69 MG), IVI
     Route: 042
     Dates: start: 20050429, end: 20050501
  4. CYTARABINE [Suspect]
     Dosage: 3 GM (3 GM), IVI
     Route: 042
     Dates: start: 20050429, end: 20050501
  5. OMEPRAZOLE [Concomitant]
  6. CORTANCYL [Concomitant]
  7. ZOFRAN [Concomitant]
  8. ALLOPURINOL [Concomitant]
  9. METHOTREXATE [Concomitant]

REACTIONS (9)
  - CATHETER RELATED INFECTION [None]
  - DIALYSIS [None]
  - GASTROINTESTINAL HAEMORRHAGE [None]
  - MEDICATION ERROR [None]
  - MULTI-ORGAN FAILURE [None]
  - OVERDOSE [None]
  - RESPIRATORY FAILURE [None]
  - SEPTIC SHOCK [None]
  - STAPHYLOCOCCAL INFECTION [None]
